FAERS Safety Report 25168916 (Version 1)
Quarter: 2025Q2

REPORT INFORMATION
  Report Type: Spontaneous
  Country: US (occurrence: US)
  Receive Date: 20250407
  Receipt Date: 20250407
  Transmission Date: 20250716
  Serious: Yes (Other)
  Sender: ASTELLAS
  Company Number: US-ASTELLAS-2025-AER-017720

PATIENT
  Age: 61 Year
  Sex: Male

DRUGS (6)
  1. GILTERITINIB [Suspect]
     Active Substance: GILTERITINIB
     Indication: Acute myeloid leukaemia
     Route: 065
  2. GILTERITINIB [Suspect]
     Active Substance: GILTERITINIB
     Route: 065
  3. CYTARABINE [Concomitant]
     Active Substance: CYTARABINE
     Indication: Acute myeloid leukaemia
     Route: 029
  4. CYTARABINE [Concomitant]
     Active Substance: CYTARABINE
     Route: 029
  5. CYTARABINE [Concomitant]
     Active Substance: CYTARABINE
     Dosage: WEEKLY UNTIL THE CSF WAS CLEAR
     Route: 029
  6. CYTARABINE [Concomitant]
     Active Substance: CYTARABINE
     Route: 029

REACTIONS (2)
  - Pancytopenia [Unknown]
  - Hepatotoxicity [Unknown]
